FAERS Safety Report 7296327-9 (Version None)
Quarter: 2011Q1

REPORT INFORMATION
  Report Type: 
  Country: None (occurrence: None)
  Receive Date: 20110211
  Receipt Date: 20110211
  Transmission Date: 20110831
  Serious: Yes (Hospitalization)
  Sender: FDA-Public Use
  Company Number: None

PATIENT
  Sex: Female
  Weight: 99.8 kg

DRUGS (2)
  1. ERBITUX [Suspect]
     Dosage: 60 MG
  2. CISPLATIN [Suspect]
     Dosage: 500 MG

REACTIONS (3)
  - NAUSEA [None]
  - DIARRHOEA [None]
  - VOMITING [None]
